FAERS Safety Report 17550681 (Version 1)
Quarter: 2020Q1

REPORT INFORMATION
  Report Type: Report from Study
  Country: US (occurrence: US)
  Receive Date: 20200317
  Receipt Date: 20200317
  Transmission Date: 20200409
  Serious: Yes (Hospitalization)
  Sender: FDA-Public Use
  Company Number: US-EISAI MEDICAL RESEARCH-EC-2020-071763

PATIENT
  Age: 80 Year
  Sex: Female

DRUGS (1)
  1. LENVIMA [Suspect]
     Active Substance: LENVATINIB
     Indication: ENDOMETRIAL NEOPLASM
     Route: 048
     Dates: start: 20191025

REACTIONS (5)
  - Pneumonia [Unknown]
  - Myocardial infarction [Unknown]
  - Drug ineffective [Not Recovered/Not Resolved]
  - Cerebrovascular accident [Unknown]
  - Blood pressure abnormal [Unknown]
